FAERS Safety Report 14671722 (Version 2)
Quarter: 2018Q2

REPORT INFORMATION
  Report Type: Report from Study
  Country: BR (occurrence: BR)
  Receive Date: 20180323
  Receipt Date: 20180416
  Transmission Date: 20180711
  Serious: Yes (Other)
  Sender: FDA-Public Use
  Company Number: BR-ROCHE-2089259

PATIENT
  Sex: Female
  Weight: 64 kg

DRUGS (3)
  1. HERCEPTIN [Suspect]
     Active Substance: TRASTUZUMAB
     Indication: BREAST CANCER
     Route: 065
  2. PERJETA [Concomitant]
     Active Substance: PERTUZUMAB
  3. KADCYLA [Concomitant]
     Active Substance: ADO-TRASTUZUMAB EMTANSINE
     Route: 065
     Dates: start: 20160314, end: 20161219

REACTIONS (2)
  - Drug ineffective [Unknown]
  - Breast cancer recurrent [Not Recovered/Not Resolved]
